FAERS Safety Report 10516536 (Version 1)
Quarter: 2014Q4

REPORT INFORMATION
  Report Type: Report from Study
  Country: BR (occurrence: BR)
  Receive Date: 20141014
  Receipt Date: 20141014
  Transmission Date: 20150528
  Serious: Yes (Hospitalization)
  Sender: FDA-Public Use
  Company Number: BR-ABBVIE-14K-020-1293318-00

PATIENT
  Age: 38 Year
  Sex: Male
  Weight: 86 kg

DRUGS (1)
  1. HUMIRA [Suspect]
     Active Substance: ADALIMUMAB
     Indication: ANKYLOSING SPONDYLITIS
     Route: 058
     Dates: start: 2010

REACTIONS (10)
  - Blood uric acid increased [Unknown]
  - Arthralgia [Recovering/Resolving]
  - Myocardial oedema [Recovered/Resolved]
  - Weight decreased [Unknown]
  - Pulmonary oedema [Recovered/Resolved]
  - Depression [Recovered/Resolved]
  - Oedema peripheral [Recovered/Resolved]
  - Heart rate irregular [Recovered/Resolved]
  - Back pain [Recovered/Resolved]
  - Cardiac valve disease [Recovered/Resolved]

NARRATIVE: CASE EVENT DATE: 201204
